FAERS Safety Report 7982212-3 (Version None)
Quarter: 2011Q4

REPORT INFORMATION
  Report Type: 
  Country: None (occurrence: None)
  Receive Date: 20111215
  Receipt Date: 20111206
  Transmission Date: 20120403
  Serious: Yes (Other)
  Sender: FDA-Public Use
  Company Number: IT-ELI_LILLY_AND_COMPANY-IT201112001617

PATIENT
  Sex: Female

DRUGS (2)
  1. BYETTA [Suspect]
     Dosage: 10 UG, UNKNOWN
  2. BYETTA [Suspect]
     Dosage: UNK, UNKNOWN

REACTIONS (2)
  - LIVER FUNCTION TEST ABNORMAL [None]
  - ASTHENIA [None]
